FAERS Safety Report 5957195-8 (Version None)
Quarter: 2008Q4

REPORT INFORMATION
  Report Type: 
  Country: None (occurrence: None)
  Receive Date: 20081118
  Receipt Date: 20081105
  Transmission Date: 20090506
  Serious: Yes (Other)
  Sender: FDA-Public Use
  Company Number: SE-GENENTECH-270134

PATIENT
  Sex: Female

DRUGS (5)
  1. LUCENTIS [Suspect]
     Indication: MACULAR DEGENERATION
     Dosage: UNK
     Dates: start: 20080609, end: 20080811
  2. RISPERIDONE [Concomitant]
     Indication: DRUG USE FOR UNKNOWN INDICATION
  3. WARFARIN SODIUM [Concomitant]
     Indication: DRUG USE FOR UNKNOWN INDICATION
  4. SELOKEN [Concomitant]
     Indication: DRUG USE FOR UNKNOWN INDICATION
  5. IMDUR [Concomitant]
     Indication: DRUG USE FOR UNKNOWN INDICATION

REACTIONS (3)
  - EYE HAEMORRHAGE [None]
  - RETINAL PIGMENT EPITHELIAL TEAR [None]
  - VISUAL ACUITY REDUCED [None]
